FAERS Safety Report 21325543 (Version 1)
Quarter: 2022Q3

REPORT INFORMATION
  Report Type: Other
  Country: US (occurrence: None)
  Receive Date: 20220912
  Receipt Date: 20220912
  Transmission Date: 20221027
  Serious: Yes (Other)
  Sender: FDA-Public Use
  Company Number: US-ROCHE-3173505

PATIENT
  Age: 60 Year
  Sex: Female

DRUGS (1)
  1. OCREVUS [Suspect]
     Active Substance: OCRELIZUMAB
     Indication: Multiple sclerosis
     Dosage: YES
     Route: 065
     Dates: start: 20180517

REACTIONS (4)
  - COVID-19 [Recovered/Resolved]
  - Post-acute COVID-19 syndrome [Not Recovered/Not Resolved]
  - Fracture [Recovered/Resolved]
  - Blood immunoglobulin M decreased [Not Recovered/Not Resolved]

NARRATIVE: CASE EVENT DATE: 20200301
